FAERS Safety Report 8919295 (Version 1)
Quarter: 2012Q4

REPORT INFORMATION
  Report Type: 
  Country: GB (occurrence: GB)
  Receive Date: 20121121
  Receipt Date: 20121121
  Transmission Date: 20130627
  Serious: Yes (Death)
  Sender: FDA-Public Use
  Company Number: GB-PFIZER INC-2012287579

PATIENT
  Sex: Male

DRUGS (2)
  1. FRAGMIN [Suspect]
     Indication: ANTIPLATELET THERAPY
     Dosage: UNK
  2. PLAVIX [Interacting]
     Indication: ANTIPLATELET THERAPY
     Route: 048

REACTIONS (4)
  - Drug interaction [Fatal]
  - Cerebral haemorrhage [Fatal]
  - Fall [Fatal]
  - Head injury [Fatal]
